FAERS Safety Report 25830511 (Version 1)
Quarter: 2025Q3

REPORT INFORMATION
  Report Type: Report from Study
  Country: AU (occurrence: AU)
  Receive Date: 20250922
  Receipt Date: 20250922
  Transmission Date: 20251021
  Serious: Yes (Death, Other)
  Sender: CHEPLAPHARM
  Company Number: None

PATIENT
  Age: 2 Month
  Sex: Male

DRUGS (9)
  1. ETOPOSIDE [Suspect]
     Active Substance: ETOPOSIDE
     Indication: Haemophagocytic lymphohistiocytosis
  2. GANCICLOVIR [Suspect]
     Active Substance: GANCICLOVIR
     Indication: Escherichia infection
  3. GANCICLOVIR [Suspect]
     Active Substance: GANCICLOVIR
     Indication: Cytomegalovirus infection
  4. DEXAMETHASONE [Suspect]
     Active Substance: DEXAMETHASONE
     Indication: Haemophagocytic lymphohistiocytosis
  5. AMIKACIN [Suspect]
     Active Substance: AMIKACIN
     Indication: Cytomegalovirus infection
  6. AMIKACIN [Suspect]
     Active Substance: AMIKACIN
     Indication: Escherichia infection
  7. MEROPENEM [Suspect]
     Active Substance: MEROPENEM
     Indication: Escherichia infection
  8. MEROPENEM [Suspect]
     Active Substance: MEROPENEM
     Indication: Cytomegalovirus infection
  9. SEBELIPASE ALFA [Concomitant]
     Active Substance: SEBELIPASE ALFA
     Route: 042

REACTIONS (4)
  - Respiratory distress [Fatal]
  - Upper gastrointestinal haemorrhage [Fatal]
  - Leukopenia [Unknown]
  - Off label use [Recovered/Resolved]
